FAERS Safety Report 4391147-7 (Version None)
Quarter: 2004Q2

REPORT INFORMATION
  Report Type: 
  Country: None (occurrence: None)
  Receive Date: 20040621
  Receipt Date: 20031020
  Transmission Date: 20050107
  Serious: Yes (Death)
  Sender: FDA-Public Use
  Company Number: USA-2003-0009899

PATIENT
  Age: 28 Year
  Sex: Female
  Weight: 59 kg

DRUGS (8)
  1. OXYCONTIN [Suspect]
  2. BENADRYL [Suspect]
  3. METHADONE HCL [Suspect]
  4. ALCOHOL (ETHANOL) [Suspect]
  5. MARIJUANA (CANNABIS) [Suspect]
  6. PSEUDOEPHEDRINE HCL [Suspect]
  7. DIAZEPAM [Suspect]
  8. EPHEDRINE (EPHEDRINE) [Suspect]

REACTIONS (2)
  - ACCIDENTAL OVERDOSE [None]
  - MULTIPLE DRUG OVERDOSE [None]
